FAERS Safety Report 9022564 (Version 1)
Quarter: 2013Q1

REPORT INFORMATION
  Report Type: Spontaneous
  Country: US (occurrence: US)
  Receive Date: 20130118
  Receipt Date: 20130118
  Transmission Date: 20140127
  Serious: No
  Sender: FDA-Public Use
  Company Number: US-GLAXOSMITHKLINE-A0979047A

PATIENT
  Age: 46 Year
  Sex: Female

DRUGS (3)
  1. PROMACTA [Suspect]
     Indication: IDIOPATHIC THROMBOCYTOPENIC PURPURA
     Dosage: 25MG PER DAY
     Route: 048
     Dates: start: 20120330
  2. PREMARIN [Concomitant]
  3. HYDROCODONE + ACETAMINOPHEN [Concomitant]

REACTIONS (1)
  - Hot flush [Not Recovered/Not Resolved]
